FAERS Safety Report 16653604 (Version 8)
Quarter: 2020Q1

REPORT INFORMATION
  Report Type: Spontaneous
  Country: BR (occurrence: BR)
  Receive Date: 20190731
  Receipt Date: 20200311
  Transmission Date: 20200409
  Serious: Yes (Hospitalization, Other)
  Sender: FDA-Public Use
  Company Number: BR-GLAXOSMITHKLINE-BR2019AMR138225

PATIENT
  Age: 40 Year
  Sex: Female

DRUGS (5)
  1. SPIRIVA [Concomitant]
     Active Substance: TIOTROPIUM BROMIDE MONOHYDRATE
     Indication: PRODUCT USED FOR UNKNOWN INDICATION
     Dosage: UNK
  2. NUCALA [Suspect]
     Active Substance: MEPOLIZUMAB
     Indication: ASTHMA
     Dosage: 100 MG, UNK
     Dates: start: 20190704
  3. RELVAR ELLIPTA [Concomitant]
     Active Substance: FLUTICASONE FUROATE\VILANTEROL TRIFENATATE
     Indication: PRODUCT USED FOR UNKNOWN INDICATION
     Dosage: UNK
  4. SINGULAIR [Concomitant]
     Active Substance: MONTELUKAST SODIUM
     Indication: PRODUCT USED FOR UNKNOWN INDICATION
     Dosage: UNK
  5. NASONEX [Concomitant]
     Active Substance: MOMETASONE FUROATE
     Indication: PRODUCT USED FOR UNKNOWN INDICATION
     Dosage: UNK

REACTIONS (17)
  - Dyspnoea [Unknown]
  - Eosinophil count abnormal [Unknown]
  - Hypoacusis [Unknown]
  - Feeling abnormal [Unknown]
  - Cough [Unknown]
  - Psoriasis [Recovered/Resolved]
  - Asthma [Recovering/Resolving]
  - Limb injury [Recovered/Resolved]
  - Pyrexia [Unknown]
  - Nasal congestion [Unknown]
  - Sinusitis [Recovering/Resolving]
  - Rash [Unknown]
  - Ear discomfort [Unknown]
  - Fungal infection [Unknown]
  - Therapy cessation [Unknown]
  - Deafness [Unknown]
  - Rash macular [Unknown]

NARRATIVE: CASE EVENT DATE: 20191014
